FAERS Safety Report 20323622 (Version 1)
Quarter: 2022Q1

REPORT INFORMATION
  Report Type: Spontaneous
  Country: US (occurrence: None)
  Receive Date: 20220111
  Receipt Date: 20220111
  Transmission Date: 20220423
  Serious: Yes (Hospitalization)
  Sender: FDA-Public Use
  Company Number: None

PATIENT
  Age: 61 Year
  Sex: Male

DRUGS (1)
  1. HUMIRA [Suspect]
     Active Substance: ADALIMUMAB
     Indication: Rheumatoid arthritis
     Dosage: OTHER FREQUENCY : EVERY 14 DAYS;?
     Route: 058
     Dates: start: 20211214, end: 20211228

REACTIONS (5)
  - Pulmonary mass [None]
  - Impaired healing [None]
  - Pulmonary pain [None]
  - Purulent discharge [None]
  - Infection [None]

NARRATIVE: CASE EVENT DATE: 20211228
